FAERS Safety Report 16290986 (Version 1)
Quarter: 2019Q2

REPORT INFORMATION
  Report Type: Spontaneous
  Country: US (occurrence: US)
  Receive Date: 20190404
  Receipt Date: 20190404
  Transmission Date: 20190711
  Serious: No
  Sender: FDA-Public Use
  Company Number: None

PATIENT
  Age: 55 Year
  Sex: Male

DRUGS (1)
  1. CELLCEPT [Suspect]
     Active Substance: MYCOPHENOLATE MOFETIL\MYCOPHENOLATE MOFETIL HYDROCHLORIDE
     Route: 048
     Dates: start: 20160823

REACTIONS (5)
  - Diarrhoea [None]
  - Vomiting [None]
  - Product dose omission [None]
  - Arthralgia [None]
  - Insurance issue [None]

NARRATIVE: CASE EVENT DATE: 20190404
